FAERS Safety Report 14008767 (Version 1)
Quarter: 2017Q3

REPORT INFORMATION
  Report Type: Spontaneous
  Country: US (occurrence: US)
  Receive Date: 20170925
  Receipt Date: 20170925
  Transmission Date: 20171128
  Serious: Yes (Hospitalization)
  Sender: FDA-Public Use
  Company Number: US-PFIZER INC-2017409304

PATIENT
  Sex: Female
  Weight: 5.61 kg

DRUGS (6)
  1. LYRICA [Suspect]
     Active Substance: PREGABALIN
     Dosage: UNK, 3X/DAY
  2. METFORMIN [Concomitant]
     Active Substance: METFORMIN HYDROCHLORIDE
     Indication: DIABETES MELLITUS
     Dosage: 500 MG, DAILY (500MG BY MOUTH 1 TABLET DAILY)
     Route: 048
     Dates: start: 20170609
  3. CLOPIDOGREL [Concomitant]
     Active Substance: CLOPIDOGREL BISULFATE
     Dosage: 75 MG, DAILY (75MG 1 TABLET BY MOUTH DAILY)
     Route: 048
  4. SERTRALINE [Concomitant]
     Active Substance: SERTRALINE HYDROCHLORIDE
     Dosage: 25 MG, 1X/DAY (25MG TABLET 1 BY MOUTH EVERY MORNING)
     Route: 048
     Dates: start: 20170627
  5. LYRICA [Suspect]
     Active Substance: PREGABALIN
     Indication: FIBROMYALGIA
     Dosage: 100 MG CAPSULE TWICE DAILY AS NEEDED
     Route: 048
  6. LISINOPRIL HCTZ [Concomitant]
     Active Substance: HYDROCHLOROTHIAZIDE\LISINOPRIL
     Dosage: [HYDROCHLOROTHIAZIDE 12.5MG]/[LISINOPRIL 20MG] 1 TABLET BY MOUTH DAILY

REACTIONS (8)
  - Chest pain [Unknown]
  - Myocardial infarction [Recovered/Resolved with Sequelae]
  - Skin wrinkling [Unknown]
  - Glucose tolerance impaired [Unknown]
  - Stress [Unknown]
  - Weight increased [Unknown]
  - Thermal burn [Unknown]
  - Product use issue [Unknown]

NARRATIVE: CASE EVENT DATE: 201707
